FAERS Safety Report 9472734 (Version 1)
Quarter: 2013Q3

REPORT INFORMATION
  Report Type: Spontaneous
  Country: FR (occurrence: FR)
  Receive Date: 20130823
  Receipt Date: 20130823
  Transmission Date: 20140515
  Serious: Yes (Hospitalization)
  Sender: FDA-Public Use
  Company Number: FR-TEVA-426410ISR

PATIENT
  Age: 75 Year
  Sex: Female

DRUGS (13)
  1. CARBOPLATINE TEVA 10 MG/ML [Suspect]
     Indication: OVARIAN CANCER
     Dosage: FOURTH LINE. COURSE 1
     Route: 041
     Dates: start: 20130405
  2. CARBOPLATINE TEVA 10 MG/ML [Suspect]
     Indication: CHEMOTHERAPY
     Dosage: COURSE 2
     Route: 041
     Dates: start: 20130426
  3. CARBOPLATINE TEVA 10 MG/ML [Suspect]
     Dosage: COURSE 3
     Route: 041
     Dates: start: 20130517, end: 20130517
  4. GEMCITABINE [Concomitant]
     Indication: CHEMOTHERAPY
     Dosage: FOURTH LINE. COURSE 1
     Dates: start: 20130405
  5. GEMCITABINE [Concomitant]
     Dosage: COURSE 2
     Dates: start: 20130426
  6. DIAMICRON [Concomitant]
  7. JANUVIA [Concomitant]
  8. PROCORALAN [Concomitant]
  9. TAHOR [Concomitant]
  10. DOLIPRANE [Concomitant]
  11. EMEND [Concomitant]
  12. ZOPHREN [Concomitant]
  13. SOLUPRED [Concomitant]

REACTIONS (7)
  - Erythema [Recovered/Resolved]
  - Pruritus [Recovered/Resolved]
  - Hypotension [Recovered/Resolved]
  - Myoclonus [Recovered/Resolved]
  - Rash pruritic [Recovered/Resolved]
  - Urticaria [Recovered/Resolved]
  - Contraindication to medical treatment [Unknown]
